FAERS Safety Report 17057743 (Version 1)
Quarter: 2019Q4

REPORT INFORMATION
  Report Type: Spontaneous
  Country: US (occurrence: US)
  Receive Date: 20191121
  Receipt Date: 20191121
  Transmission Date: 20200122
  Serious: No
  Sender: FDA-Public Use
  Company Number: US-APOTEX-2019AP024543

PATIENT
  Sex: Female

DRUGS (4)
  1. FLUTICASONE. [Suspect]
     Active Substance: FLUTICASONE
     Indication: DUST ALLERGY
     Dosage: UNK , BID (2 SPRAYS ON BOTH NOSTRILS TWICE A DAY)
     Route: 045
     Dates: start: 2019, end: 2019
  2. SUDAFED [Concomitant]
     Active Substance: PSEUDOEPHEDRINE HYDROCHLORIDE
     Indication: NASAL DECONGESTION THERAPY
     Dosage: 30 MG, BID (WITH 4 TO 6 HOURS INTERVAL)
     Route: 065
  3. SUDAFED [Concomitant]
     Active Substance: PSEUDOEPHEDRINE HYDROCHLORIDE
     Indication: HYPERSENSITIVITY
  4. ZOLOFT [Concomitant]
     Active Substance: SERTRALINE HYDROCHLORIDE
     Indication: ANTIDEPRESSANT THERAPY
     Dosage: 125 MG, QD
     Route: 065

REACTIONS (6)
  - Pharyngeal swelling [Recovered/Resolved]
  - Dysphagia [Recovered/Resolved]
  - Sneezing [Recovering/Resolving]
  - Nasal discomfort [Recovering/Resolving]
  - Visual impairment [Not Recovered/Not Resolved]
  - Eyelid margin crusting [Recovering/Resolving]

NARRATIVE: CASE EVENT DATE: 2019
